FAERS Safety Report 16370652 (Version 1)
Quarter: 2019Q2

REPORT INFORMATION
  Report Type: Spontaneous
  Country: CA (occurrence: CA)
  Receive Date: 20190530
  Receipt Date: 20190530
  Transmission Date: 20190711
  Serious: Yes (Hospitalization)
  Sender: FDA-Public Use
  Company Number: CA-TEVA-2019-CA-1054734

PATIENT
  Age: 46 Year
  Sex: Male

DRUGS (12)
  1. CYMBALTA [Concomitant]
     Active Substance: DULOXETINE HYDROCHLORIDE
     Indication: NEURALGIA
     Dosage: 30 MILLIGRAM DAILY;
     Route: 048
  2. HYDROMORPHONE [Concomitant]
     Active Substance: HYDROMORPHONE
     Indication: NEURALGIA
     Dosage: 8 MILLIGRAM DAILY;
     Route: 065
  3. GABAPENTIN. [Concomitant]
     Active Substance: GABAPENTIN
     Indication: PRODUCT USED FOR UNKNOWN INDICATION
  4. HYDROMORPHONE [Concomitant]
     Active Substance: HYDROMORPHONE
     Indication: PRODUCT USED FOR UNKNOWN INDICATION
  5. DIAZEPAM. [Suspect]
     Active Substance: DIAZEPAM
     Indication: ANXIETY
     Route: 048
  6. BACLOFEN. [Suspect]
     Active Substance: BACLOFEN
     Indication: MUSCLE SPASTICITY
     Dosage: 115 MICROGRAM DAILY;
     Route: 037
  7. HYDROMORPH CONTIN [Concomitant]
     Active Substance: HYDROMORPHONE
     Indication: NEURALGIA
     Dosage: 36 MILLIGRAM DAILY; CAPSULE, SUSTAINED RELEASE
     Route: 048
  8. HYDROMORPH CONTIN [Concomitant]
     Active Substance: HYDROMORPHONE
     Indication: PRODUCT USED FOR UNKNOWN INDICATION
  9. BACLOFEN. [Suspect]
     Active Substance: BACLOFEN
     Dosage: 80 MILLIGRAM DAILY;
     Route: 048
  10. BACLOFEN. [Suspect]
     Active Substance: BACLOFEN
     Dosage: 45 MILLIGRAM DAILY;
     Route: 048
  11. CYMBALTA [Concomitant]
     Active Substance: DULOXETINE HYDROCHLORIDE
     Indication: PRODUCT USED FOR UNKNOWN INDICATION
  12. GABAPENTIN. [Concomitant]
     Active Substance: GABAPENTIN
     Indication: NEURALGIA
     Dosage: 1600 MILLIGRAM DAILY;
     Route: 065

REACTIONS (6)
  - Delirium tremens [Unknown]
  - Overdose [Unknown]
  - Drug ineffective [Unknown]
  - Decreased appetite [Unknown]
  - Somnolence [Unknown]
  - Alcohol withdrawal syndrome [Unknown]
